FAERS Safety Report 5619242-2 (Version None)
Quarter: 2008Q1

REPORT INFORMATION
  Report Type: 
  Country: None (occurrence: None)
  Receive Date: 20080205
  Receipt Date: 20080129
  Transmission Date: 20080703
  Serious: Yes (Hospitalization)
  Sender: FDA-Public Use
  Company Number: 2007JP005803

PATIENT
  Age: 28 Year
  Sex: Male

DRUGS (3)
  1. TACROLIMUS [Suspect]
     Indication: DERMATITIS ATOPIC
     Dosage: 0.1 %, TOPICAL; 0.1 %, TOPICAL; 0.1 %, TOPICAL
     Route: 061
  2. RISPERIDONE [Suspect]
     Indication: SCHIZOPHRENIA, PARANOID TYPE
     Dosage: 5 MG,; 3 MG,; 3 MG,
  3. HALOPERIDOL (HALOPERIDOL) FORMULATION UNKNOWN [Concomitant]

REACTIONS (8)
  - DISEASE RECURRENCE [None]
  - DRUG INEFFECTIVE [None]
  - HALLUCINATION, AUDITORY [None]
  - HYPERSOMNIA [None]
  - MUSCLE RIGIDITY [None]
  - PERSECUTORY DELUSION [None]
  - SCHIZOPHRENIA [None]
  - SELF INJURIOUS BEHAVIOUR [None]
